FAERS Safety Report 25107261 (Version 1)
Quarter: 2025Q1

REPORT INFORMATION
  Report Type: Spontaneous
  Country: US (occurrence: US)
  Receive Date: 20250321
  Receipt Date: 20250321
  Transmission Date: 20250409
  Serious: No
  Sender: DR REDDYS
  Company Number: US-DRL-USA-USA/2025/03/003892

PATIENT
  Age: 29 Year
  Sex: Female

DRUGS (5)
  1. IBUPROFEN [Suspect]
     Active Substance: IBUPROFEN
     Indication: Post lumbar puncture syndrome
  2. ACETAMINOPHEN [Concomitant]
     Active Substance: ACETAMINOPHEN
     Indication: Post lumbar puncture syndrome
  3. HYDROCODONE [Concomitant]
     Active Substance: HYDROCODONE
     Indication: Post lumbar puncture syndrome
  4. BUTALBITAL [Concomitant]
     Active Substance: BUTALBITAL
     Indication: Post lumbar puncture syndrome
  5. CAFFEINE [Concomitant]
     Active Substance: CAFFEINE
     Indication: Post lumbar puncture syndrome

REACTIONS (1)
  - Drug ineffective [Unknown]
